FAERS Safety Report 5793228-X (Version None)
Quarter: 2008Q2

REPORT INFORMATION
  Report Type: 
  Country: None (occurrence: None)
  Receive Date: 20080627
  Receipt Date: 20080624
  Transmission Date: 20081010
  Serious: Yes (Death, Life-Threatening, Hospitalization)
  Sender: FDA-Public Use
  Company Number: FR-ASTRAZENECA-2008CG00984

PATIENT
  Age: 15936 Day
  Sex: Male

DRUGS (13)
  1. NEXIUM [Suspect]
     Route: 048
     Dates: start: 20060921
  2. PREVISCAN [Suspect]
     Route: 048
     Dates: start: 20060109
  3. TAXOTERE [Suspect]
     Route: 042
     Dates: start: 20060926, end: 20060926
  4. CISPLATIN [Suspect]
     Route: 042
     Dates: start: 20060926, end: 20060928
  5. ZOPHREN [Suspect]
     Route: 042
     Dates: start: 20060926
  6. SOLU-MEDROL [Suspect]
     Route: 042
     Dates: start: 20060926, end: 20060928
  7. DOMPERIDONE [Suspect]
     Route: 048
  8. GAVISCON [Suspect]
     Route: 048
  9. IMODIUM [Suspect]
     Route: 048
     Dates: start: 20060929
  10. AMITRIPTYLINE HYDROCHLORIDE [Suspect]
     Route: 048
  11. LYSANXIA [Suspect]
     Route: 048
     Dates: start: 20061001
  12. OXYCONTIN [Suspect]
     Route: 048
  13. PROFENID [Suspect]
     Route: 048
     Dates: start: 20060930, end: 20060930

REACTIONS (8)
  - ANAEMIA [None]
  - CARDIAC TAMPONADE [None]
  - CONFUSIONAL STATE [None]
  - HAEMORRHAGE [None]
  - INTERNATIONAL NORMALISED RATIO INCREASED [None]
  - LACTIC ACIDOSIS [None]
  - PLEURAL EFFUSION [None]
  - RESPIRATORY DISTRESS [None]
